FAERS Safety Report 8427996-5 (Version None)
Quarter: 2012Q2

REPORT INFORMATION
  Report Type: 
  Country: None (occurrence: None)
  Receive Date: 20120611
  Receipt Date: 20120606
  Transmission Date: 20120825
  Serious: Yes (Death, Hospitalization, Disabling, Other)
  Sender: FDA-Public Use
  Company Number: PHHY2011DE66944

PATIENT
  Sex: Male
  Weight: 60 kg

DRUGS (10)
  1. TASIGNA [Suspect]
     Dosage: 200 MG, TID
     Route: 048
     Dates: start: 20110518, end: 20111024
  2. TASIGNA [Suspect]
     Indication: CHRONIC MYELOID LEUKAEMIA
     Dosage: 400 MG, BID
     Route: 048
     Dates: start: 20110120, end: 20110429
  3. TASIGNA [Suspect]
     Dosage: 200 MG, BID
     Route: 048
     Dates: start: 20110506, end: 20110518
  4. BERLTHYROX [Concomitant]
  5. SIMVASTATIN [Concomitant]
  6. PENTAERYTHRITOL TETRANITATE [Concomitant]
  7. ALLOPURINOL [Concomitant]
  8. METOPROLOL TARTRATE [Concomitant]
     Indication: HYPERTENSION
     Route: 048
     Dates: start: 20110722
  9. ASPIRIN [Concomitant]
  10. BENAZEPRIL HYDROCHLORIDE [Concomitant]

REACTIONS (18)
  - SINOATRIAL BLOCK [None]
  - ANAPHYLACTIC REACTION [None]
  - SUPRAVENTRICULAR TACHYCARDIA [None]
  - FALL [None]
  - ACUTE CORONARY SYNDROME [None]
  - NERVOUS SYSTEM DISORDER [None]
  - MENTAL DISORDER DUE TO A GENERAL MEDICAL CONDITION [None]
  - CORONARY ARTERY DISEASE [None]
  - LIP SWELLING [None]
  - SWELLING FACE [None]
  - PNEUMONIA [None]
  - MYOCARDIAL INFARCTION [None]
  - HAEMORRHAGE INTRACRANIAL [None]
  - APALLIC SYNDROME [None]
  - HYPOXIC-ISCHAEMIC ENCEPHALOPATHY [None]
  - SEDATION [None]
  - PAIN IN EXTREMITY [None]
  - VENTRICULAR FIBRILLATION [None]
